FAERS Safety Report 7896650-0 (Version None)
Quarter: 2011Q4

REPORT INFORMATION
  Report Type: 
  Country: None (occurrence: None)
  Receive Date: 20111107
  Receipt Date: 20111028
  Transmission Date: 20120403
  Serious: No
  Sender: FDA-Public Use
  Company Number: US-BIOGENIDEC-2011BI019951

PATIENT
  Sex: Female

DRUGS (1)
  1. TYSABRI [Suspect]
     Indication: MULTIPLE SCLEROSIS
     Route: 042
     Dates: start: 20100608

REACTIONS (7)
  - PARAESTHESIA [None]
  - HALLUCINATION [None]
  - VITREOUS FLOATERS [None]
  - MEMORY IMPAIRMENT [None]
  - MIGRAINE [None]
  - HYPOAESTHESIA [None]
  - EMOTIONAL DISORDER [None]
